FAERS Safety Report 14153988 (Version 3)
Quarter: 2018Q1

REPORT INFORMATION
  Report Type: Spontaneous
  Country: IE (occurrence: IE)
  Receive Date: 20171102
  Receipt Date: 20180315
  Transmission Date: 20180508
  Serious: Yes (Other)
  Sender: FDA-Public Use
  Company Number: IE-PFIZER INC-2017466252

PATIENT
  Age: 6 Year
  Sex: Female

DRUGS (1)
  1. GENOTROPIN [Suspect]
     Active Substance: SOMATROPIN
     Indication: TURNER^S SYNDROME
     Dosage: 0.9 MG, UNK
     Route: 058
     Dates: start: 201402

REACTIONS (5)
  - Drug prescribing error [Unknown]
  - Arthralgia [Recovered/Resolved]
  - Limb asymmetry [Recovered/Resolved]
  - Joint dislocation [Unknown]
  - Gait disturbance [Unknown]
